FAERS Safety Report 25198203 (Version 1)
Quarter: 2025Q2

REPORT INFORMATION
  Report Type: Spontaneous
  Country: US (occurrence: None)
  Receive Date: 20250414
  Receipt Date: 20250414
  Transmission Date: 20250717
  Serious: Yes (Other)
  Sender: FDA-CTU
  Company Number: None

PATIENT
  Age: 77 Year
  Sex: Female
  Weight: 59.85 kg

DRUGS (7)
  1. TRAZODONE [Suspect]
     Active Substance: TRAZODONE HYDROCHLORIDE
     Indication: Depression
     Route: 048
     Dates: start: 20250411, end: 20250413
  2. GABAPENTIN [Suspect]
     Active Substance: GABAPENTIN
  3. LEVOTHYROXINE [Suspect]
     Active Substance: LEVOTHYROXINE
  4. XARELTO [Concomitant]
     Active Substance: RIVAROXABAN
  5. ferrous sulfate 325mgm [Concomitant]
  6. daily vitamin c 250mgm [Concomitant]
  7. calcium 650mgm [Concomitant]

REACTIONS (10)
  - Dizziness [None]
  - Chest discomfort [None]
  - Vision blurred [None]
  - Tinnitus [None]
  - Joint stiffness [None]
  - Joint stiffness [None]
  - Joint stiffness [None]
  - Joint swelling [None]
  - Impaired work ability [None]
  - Joint swelling [None]

NARRATIVE: CASE EVENT DATE: 20250413
